FAERS Safety Report 24827688 (Version 1)
Quarter: 2025Q1

REPORT INFORMATION
  Report Type: Spontaneous
  Country: AU (occurrence: AU)
  Receive Date: 20250109
  Receipt Date: 20250109
  Transmission Date: 20250409
  Serious: No
  Sender: JAZZ
  Company Number: AU-PHARMAMAR-2024PM000555

PATIENT
  Age: 63 Year

DRUGS (1)
  1. LURBINECTEDIN [Suspect]
     Active Substance: LURBINECTEDIN
     Indication: Bladder cancer
     Dosage: 3.2 MILLIGRAM/SQ. METER, Q3W
     Dates: start: 20240711, end: 20240711

REACTIONS (1)
  - Off label use [Unknown]

NARRATIVE: CASE EVENT DATE: 20240711
